FAERS Safety Report 25424036 (Version 1)
Quarter: 2025Q2

REPORT INFORMATION
  Report Type: Spontaneous
  Country: CN (occurrence: CN)
  Receive Date: 20250611
  Receipt Date: 20250611
  Transmission Date: 20250717
  Serious: Yes (Hospitalization, Other)
  Sender: PFIZER
  Company Number: CN-PFIZER INC-PV202500067928

PATIENT
  Age: 66 Year
  Sex: Male

DRUGS (6)
  1. VORICONAZOLE [Suspect]
     Active Substance: VORICONAZOLE
     Indication: Pneumonia fungal
     Dosage: 0.2 G, 2X/DAY
     Route: 041
     Dates: start: 20250318, end: 20250410
  2. MEROPENEM [Concomitant]
     Active Substance: MEROPENEM
     Indication: Pneumonia
     Dates: start: 202502
  3. AMPHOTERICIN B CHOLESTERYL SULFATE [Concomitant]
     Active Substance: AMPHOTERICIN B CHOLESTERYL SULFATE
     Indication: Pneumonia fungal
     Dates: start: 20250302
  4. OMADACYCLINE [Concomitant]
     Active Substance: OMADACYCLINE
     Indication: Pneumonia
     Dates: start: 20250318, end: 20250401
  5. LINEZOLID [Concomitant]
     Active Substance: LINEZOLID
     Indication: Pneumonia
     Dates: start: 20250318
  6. ERAVACYCLINE [Concomitant]
     Active Substance: ERAVACYCLINE
     Indication: Pneumonia
     Dates: start: 20250401

REACTIONS (1)
  - Mental disorder [Recovering/Resolving]

NARRATIVE: CASE EVENT DATE: 20250407
